FAERS Safety Report 9822766 (Version 1)
Quarter: 2014Q1

REPORT INFORMATION
  Report Type: Spontaneous
  Country: PL (occurrence: PL)
  Receive Date: 20140116
  Receipt Date: 20140116
  Transmission Date: 20141002
  Serious: Yes (Other)
  Sender: FDA-Public Use
  Company Number: PHHY2014PL003370

PATIENT
  Age: 43 Year
  Sex: Female
  Weight: 90 kg

DRUGS (8)
  1. DOCETAXEL [Suspect]
     Dosage: 150 MG, QD
     Route: 042
     Dates: start: 20130812, end: 20130812
  2. ONDANSETRON [Suspect]
     Dosage: 8 MG, QD
     Route: 042
     Dates: start: 20130812, end: 20130812
  3. DEXAVEN [Concomitant]
     Dosage: 20 MG, QD
     Route: 042
     Dates: start: 20130812, end: 20130812
  4. ADRIBLASTINE [Concomitant]
     Indication: NEOPLASM MALIGNANT
     Dosage: 100 MG, QD
     Route: 042
     Dates: start: 20130812, end: 20130812
  5. METOCLOPRAMID [Concomitant]
     Route: 042
     Dates: start: 20130812, end: 20130812
  6. HYDROCORTISONUM ACETICUM [Concomitant]
     Dosage: 100 MG, UNK
     Route: 042
  7. CLEMASTIN [Concomitant]
     Route: 042
  8. CALCIUM CHLORATUM [Concomitant]
     Route: 042

REACTIONS (2)
  - Agitation [Recovered/Resolved]
  - Dyspnoea [Recovered/Resolved]
